FAERS Safety Report 25780099 (Version 1)
Quarter: 2025Q3

REPORT INFORMATION
  Report Type: Spontaneous
  Country: EU (occurrence: EU)
  Receive Date: 20250909
  Receipt Date: 20250909
  Transmission Date: 20251021
  Serious: Yes (Life-Threatening, Hospitalization)
  Sender: MYLAN
  Company Number: None

PATIENT
  Age: 63 Year
  Sex: Male
  Weight: 85 kg

DRUGS (4)
  1. CELECOXIB [Suspect]
     Active Substance: CELECOXIB
     Indication: Osteoarthritis
     Dosage: 200 MILLIGRAM, QD (NOT EVERY DAY. FOR 7 DAYS, ONE CAP DAILY, 10-DAY BREAK, 200 MG DAILY FOR 7 DAYS)
     Dates: start: 202410, end: 202508
  2. CELECOXIB [Suspect]
     Active Substance: CELECOXIB
     Dosage: 200 MILLIGRAM, QD (NOT EVERY DAY. FOR 7 DAYS, ONE CAP DAILY, 10-DAY BREAK, 200 MG DAILY FOR 7 DAYS)
     Route: 048
     Dates: start: 202410, end: 202508
  3. CELECOXIB [Suspect]
     Active Substance: CELECOXIB
     Dosage: 200 MILLIGRAM, QD (NOT EVERY DAY. FOR 7 DAYS, ONE CAP DAILY, 10-DAY BREAK, 200 MG DAILY FOR 7 DAYS)
     Route: 048
     Dates: start: 202410, end: 202508
  4. CELECOXIB [Suspect]
     Active Substance: CELECOXIB
     Dosage: 200 MILLIGRAM, QD (NOT EVERY DAY. FOR 7 DAYS, ONE CAP DAILY, 10-DAY BREAK, 200 MG DAILY FOR 7 DAYS)
     Dates: start: 202410, end: 202508

REACTIONS (1)
  - Atrial fibrillation [Recovered/Resolved]

NARRATIVE: CASE EVENT DATE: 20250701
